FAERS Safety Report 7500823-6 (Version None)
Quarter: 2011Q2

REPORT INFORMATION
  Report Type: 
  Country: None (occurrence: None)
  Receive Date: 20110524
  Receipt Date: 20110415
  Transmission Date: 20111010
  Serious: Yes (Hospitalization, Disabling)
  Sender: FDA-Public Use
  Company Number: A0870443A

PATIENT
  Age: 72 Year
  Sex: Male
  Weight: 113.6 kg

DRUGS (13)
  1. ZOCOR [Concomitant]
  2. LIPITOR [Concomitant]
  3. PRAZOSIN HCL [Concomitant]
  4. FLOMAX [Concomitant]
  5. COUMADIN [Concomitant]
  6. MONOPRIL [Concomitant]
  7. TRIMOX [Concomitant]
  8. FAMOTIDINE [Concomitant]
  9. PRAZOSIN HCL [Concomitant]
  10. FOSINOPRIL SODIUM [Concomitant]
  11. AVANDIA [Suspect]
     Dosage: 8MG PER DAY
     Route: 048
     Dates: start: 20010821, end: 20050101
  12. VOLMAX [Concomitant]
  13. ROBINUL [Concomitant]

REACTIONS (22)
  - GASTROSTOMY [None]
  - ILL-DEFINED DISORDER [None]
  - WEIGHT INCREASED [None]
  - FATIGUE [None]
  - DYSPHAGIA [None]
  - HEMIPLEGIA [None]
  - CYSTITIS [None]
  - WEIGHT DECREASED [None]
  - FLUID RETENTION [None]
  - RED BLOOD CELL COUNT DECREASED [None]
  - IMMOBILE [None]
  - INCONTINENCE [None]
  - CEREBROVASCULAR ACCIDENT [None]
  - APHASIA [None]
  - DIARRHOEA [None]
  - DIPLOPIA [None]
  - ABASIA [None]
  - NOCTURIA [None]
  - COMMUNICATION DISORDER [None]
  - PAIN [None]
  - DYSSTASIA [None]
  - TRANSIENT ISCHAEMIC ATTACK [None]
